FAERS Safety Report 10280155 (Version 1)
Quarter: 2014Q3

REPORT INFORMATION
  Report Type: Spontaneous
  Country: US (occurrence: US)
  Receive Date: 20140707
  Receipt Date: 20140707
  Transmission Date: 20150326
  Serious: Yes (Other)
  Sender: FDA-Public Use
  Company Number: US-PFIZER INC-2014184229

PATIENT
  Age: 64 Year
  Sex: Female
  Weight: 51.7 kg

DRUGS (2)
  1. CORTEF [Suspect]
     Active Substance: HYDROCORTISONE
     Indication: ADRENAL INSUFFICIENCY
     Dosage: 30 MG, DAILY
     Route: 048
  2. PULMICORT FLEXHALER [Concomitant]
     Active Substance: BUDESONIDE
     Dosage: 180 UG, 4X/DAY

REACTIONS (4)
  - Fatigue [Unknown]
  - Malaise [Unknown]
  - Diverticulitis [Unknown]
  - Aphagia [Unknown]

NARRATIVE: CASE EVENT DATE: 20140506
